FAERS Safety Report 9629983 (Version 1)
Quarter: 2013Q4

REPORT INFORMATION
  Report Type: Spontaneous
  Country: US (occurrence: US)
  Receive Date: 20131017
  Receipt Date: 20131017
  Transmission Date: 20140711
  Serious: Yes (Other)
  Sender: FDA-Public Use
  Company Number: US-BAYER-2013-122307

PATIENT
  Sex: Female

DRUGS (1)
  1. CIPRO [Suspect]
     Indication: PNEUMONIA ANTHRAX
     Dosage: UNK
     Route: 048
     Dates: start: 201309, end: 201309

REACTIONS (5)
  - Faecaloma [None]
  - Constipation [None]
  - Haemorrhage [None]
  - Faeces hard [None]
  - Drug dose omission [None]
